FAERS Safety Report 9128382 (Version 1)
Quarter: 2013Q1

REPORT INFORMATION
  Report Type: Spontaneous
  Country: FR (occurrence: FR)
  Receive Date: 20130125
  Receipt Date: 20130125
  Transmission Date: 20140127
  Serious: Yes (Disabling)
  Sender: FDA-Public Use
  Company Number: FR-UCBSA-076160

PATIENT
  Age: 69 Year
  Sex: Female

DRUGS (3)
  1. CIMZIA [Suspect]
     Indication: RHEUMATOID ARTHRITIS
     Dosage: 200 MG
     Route: 058
     Dates: start: 201207, end: 201208
  2. CIMZIA [Suspect]
     Indication: RHEUMATOID ARTHRITIS
     Dosage: 200 MG
     Route: 058
     Dates: start: 201208
  3. CORTANCYL [Concomitant]
     Dosage: VARIABLE DOSE

REACTIONS (4)
  - Abscess of external auditory meatus [Unknown]
  - Sudden hearing loss [Unknown]
  - Rash [Recovered/Resolved]
  - Asthenia [Unknown]
